FAERS Safety Report 19402812 (Version 1)
Quarter: 2021Q2

REPORT INFORMATION
  Report Type: Spontaneous
  Country: IN (occurrence: IN)
  Receive Date: 20210610
  Receipt Date: 20210610
  Transmission Date: 20210717
  Serious: Yes (Other)
  Sender: FDA-Public Use
  Company Number: IN-PFIZER INC-2021217753

PATIENT
  Age: 86 Year
  Sex: Female

DRUGS (1)
  1. PALBACE [Suspect]
     Active Substance: PALBOCICLIB
     Indication: BREAST CANCER METASTATIC
     Dosage: 100 MG, ONCE A DAY, CYCLIC FOR 21 DAYS
     Route: 048
     Dates: start: 20201128

REACTIONS (2)
  - Asthenia [Unknown]
  - Blood creatinine increased [Unknown]
